FAERS Safety Report 21570642 (Version 1)
Quarter: 2022Q4

REPORT INFORMATION
  Report Type: Spontaneous
  Country: RU (occurrence: RU)
  Receive Date: 20221109
  Receipt Date: 20221109
  Transmission Date: 20230113
  Serious: Yes (Other)
  Sender: FDA-Public Use
  Company Number: None

PATIENT

DRUGS (3)
  1. ONCASPAR [Suspect]
     Active Substance: PEGASPARGASE
     Indication: Acute lymphocytic leukaemia recurrent
     Dosage: 1060 IU
     Route: 042
     Dates: start: 20220131, end: 20220131
  2. Dexamed [Concomitant]
     Indication: Product used for unknown indication
     Dosage: UNK
     Route: 042
  3. ALLOPURINOL [Concomitant]
     Active Substance: ALLOPURINOL
     Indication: Product used for unknown indication
     Dosage: UNK
     Route: 048

REACTIONS (2)
  - Hypotension [Recovering/Resolving]
  - Bronchial obstruction [Recovering/Resolving]

NARRATIVE: CASE EVENT DATE: 20220131
